FAERS Safety Report 15602975 (Version 1)
Quarter: 2018Q4

REPORT INFORMATION
  Report Type: Spontaneous
  Country: US (occurrence: US)
  Receive Date: 20181109
  Receipt Date: 20181109
  Transmission Date: 20190205
  Serious: No
  Sender: FDA-Public Use
  Company Number: US-MYLANLABS-2018M1079399

PATIENT
  Sex: Female

DRUGS (2)
  1. DIAZEPAM TABLETS USP [Suspect]
     Active Substance: DIAZEPAM
     Indication: DEPRESSION
     Dosage: 10 MG, UNK
     Route: 048
     Dates: start: 20181011
  2. DIAZEPAM TABLETS USP [Suspect]
     Active Substance: DIAZEPAM
     Indication: ANXIETY
     Dosage: UNK
     Route: 048

REACTIONS (6)
  - Product taste abnormal [Unknown]
  - Product solubility abnormal [Unknown]
  - Wrong technique in product usage process [Unknown]
  - Product quality issue [Unknown]
  - Drug ineffective [Unknown]
  - Feeling abnormal [Unknown]
